FAERS Safety Report 5598196-1 (Version None)
Quarter: 2008Q1

REPORT INFORMATION
  Report Type: 
  Country: None (occurrence: None)
  Receive Date: 20080122
  Receipt Date: 20080114
  Transmission Date: 20080703
  Serious: Yes (Hospitalization, Other)
  Sender: FDA-Public Use
  Company Number: PHNU2007DE04241

PATIENT
  Age: 69 Year
  Sex: Female
  Weight: 65 kg

DRUGS (6)
  1. SANDIMMUNE [Suspect]
     Indication: NEPHROTIC SYNDROME
     Dosage: 50 MG, BID
     Dates: start: 20071214, end: 20071217
  2. CORTISONE [Concomitant]
     Dosage: 50MG/DAY
     Route: 048
  3. AMITRIPTYLINE HCL [Concomitant]
     Dosage: 25MG/DAY
  4. AMLODIPINE [Concomitant]
     Dosage: 5MG/DAY
  5. ALISKIREN [Concomitant]
     Dosage: 150MG/DAY
     Route: 048
  6. SORTIS [Concomitant]
     Dosage: 40MG/DAY

REACTIONS (2)
  - GAIT DISTURBANCE [None]
  - POLYNEUROPATHY [None]
